FAERS Safety Report 8381436-3 (Version None)
Quarter: 2012Q2

REPORT INFORMATION
  Report Type: 
  Country: None (occurrence: None)
  Receive Date: 20120523
  Receipt Date: 20120508
  Transmission Date: 20120825
  Serious: Yes (Other)
  Sender: FDA-Public Use
  Company Number: PL-ROCHE-1067658

PATIENT
  Age: 44 Year
  Sex: Female

DRUGS (7)
  1. DOXORUBICIN HCL [Suspect]
     Indication: OVARIAN CANCER
  2. VINCRISTINE [Suspect]
     Indication: OVARIAN CANCER
  3. HEVIRAN [Concomitant]
  4. TAMOXIFEN CITRATE [Concomitant]
  5. RITUXIMAB [Suspect]
     Indication: OVARIAN CANCER
  6. CYCLOPHOSPHAMIDE [Suspect]
     Indication: OVARIAN CANCER
  7. PREDNISONE [Suspect]
     Indication: OVARIAN CANCER

REACTIONS (12)
  - ANAEMIA [None]
  - LEUKOPENIA [None]
  - BETA 2 MICROGLOBULIN INCREASED [None]
  - NAUSEA [None]
  - IRON DEFICIENCY [None]
  - FOLATE DEFICIENCY [None]
  - HERPES ZOSTER [None]
  - VITAMIN B12 INCREASED [None]
  - RETROPERITONEAL MASS [None]
  - VOMITING [None]
  - NEPHROPATHY TOXIC [None]
  - ASTHENIA [None]
